FAERS Safety Report 16094713 (Version 1)
Quarter: 2019Q1

REPORT INFORMATION
  Report Type: Spontaneous
  Country: US (occurrence: US)
  Receive Date: 20190320
  Receipt Date: 20190320
  Transmission Date: 20190418
  Serious: Yes (Hospitalization, Other)
  Sender: FDA-Public Use
  Company Number: US-BAYER-2019-049160

PATIENT
  Age: 65 Year
  Sex: Male

DRUGS (1)
  1. COPPERTONE UNKNOWN (AVOBENZONE\HOMOSALATE\OCTISALATE) [Suspect]
     Active Substance: AVOBENZONE\HOMOSALATE\OCTISALATE
     Dosage: UNK

REACTIONS (2)
  - Skin cancer [None]
  - Hyperkeratosis [None]
